FAERS Safety Report 14293651 (Version 2)
Quarter: 2018Q2

REPORT INFORMATION
  Report Type: Spontaneous
  Country: GB (occurrence: GB)
  Receive Date: 20171216
  Receipt Date: 20180507
  Transmission Date: 20180711
  Serious: Yes (Death)
  Sender: FDA-Public Use
  Company Number: GB-ROCHE-2042458

PATIENT
  Age: 68 Year
  Sex: Male

DRUGS (2)
  1. CLOBAZAM [Concomitant]
     Active Substance: CLOBAZAM
     Indication: EPILEPSY
     Route: 065
     Dates: start: 2002, end: 20160114
  2. CLONAZEPAM. [Suspect]
     Active Substance: CLONAZEPAM
     Indication: PRODUCT USED FOR UNKNOWN INDICATION
     Route: 065
     Dates: start: 20160115, end: 20160118

REACTIONS (6)
  - Product name confusion [Fatal]
  - Accidental overdose [Fatal]
  - Pneumonia [Fatal]
  - Depressed level of consciousness [Fatal]
  - Drug dispensing error [Fatal]
  - Bronchitis [Fatal]

NARRATIVE: CASE EVENT DATE: 20160116
